FAERS Safety Report 8811065 (Version 1)
Quarter: 2012Q4

REPORT INFORMATION
  Report Type: Spontaneous
  Country: US (occurrence: None)
  Receive Date: 20120924
  Receipt Date: 20120924
  Transmission Date: 20130627
  Serious: Yes (Hospitalization)
  Sender: FDA-Public Use
  Company Number: VAL_00857_2012

PATIENT
  Age: 62 Year
  Sex: Female

DRUGS (6)
  1. LOPRESSOR [Suspect]
     Indication: HYPERTENSION
     Dosage: (DF)
  2. LOPRESSOR [Suspect]
     Indication: ANXIETY
     Dosage: (DF)
  3. LOPRESSOR [Suspect]
     Dosage: (DF)
  4. NORVASC [Concomitant]
  5. DILANTIN /00017401/ [Concomitant]
  6. DIAZEPAM [Concomitant]

REACTIONS (3)
  - Pancreatitis [None]
  - Allergy to chemicals [None]
  - Product quality issue [None]
